FAERS Safety Report 22116044 (Version 1)
Quarter: 2023Q1

REPORT INFORMATION
  Report Type: Spontaneous
  Country: CN (occurrence: CN)
  Receive Date: 20230320
  Receipt Date: 20230320
  Transmission Date: 20230418
  Serious: Yes (Other)
  Sender: FDA-Public Use
  Company Number: CN-002147023-NVSC2023CN063780

PATIENT
  Sex: Female

DRUGS (11)
  1. LETROZOLE [Suspect]
     Active Substance: LETROZOLE
     Indication: Ovulation induction
     Dosage: 5 MG, QD (TABLETS, 2.5-5 MG/D WAS GIVEN ON THE 2ND-3RD DAY OF MENSTRUATION, FOR 5 DAYS TOTAL)
     Route: 048
  2. LEUPROLIDE ACETATE [Suspect]
     Active Substance: LEUPROLIDE ACETATE
     Indication: Hormone replacement therapy
     Dosage: 3.75 MG (MICROSPHERES FOR INJECTION, ON THE 2ND-3RD DAY OF MENSTRUATION)
     Route: 058
  3. ESTRADIOL VALERATE [Suspect]
     Active Substance: ESTRADIOL VALERATE
     Indication: Hormone replacement therapy
     Dosage: 6 MG, QD (AFTER 28 TO 30 DAYS)
     Route: 048
  4. ESTRADIOL VALERATE [Suspect]
     Active Substance: ESTRADIOL VALERATE
     Dosage: 6 MG, QD (DIRECTLY ON THE 2ND-3RD DAY OF MENSTRUATION)
     Route: 048
  5. PROGESTERONE [Suspect]
     Active Substance: PROGESTERONE
     Indication: Hormone replacement therapy
     Dosage: 300 MG, QD
     Route: 048
  6. PROGESTERONE [Suspect]
     Active Substance: PROGESTERONE
     Dosage: 300 MG, QD
     Route: 048
  7. PROGESTERONE [Suspect]
     Active Substance: PROGESTERONE
     Dosage: 300 MG, QD
     Route: 048
  8. PROGESTERONE [Suspect]
     Active Substance: PROGESTERONE
     Indication: Hormone replacement therapy
     Dosage: 600 MG, QD
     Route: 067
  9. PROGESTERONE [Suspect]
     Active Substance: PROGESTERONE
     Dosage: 600 MG, QD
     Route: 067
  10. PROGESTERONE [Suspect]
     Active Substance: PROGESTERONE
     Dosage: 400 MG, QD (FOR LUTEAL SUPPORT)
     Route: 067
  11. SODIUM CITRATE [Suspect]
     Active Substance: SODIUM CITRATE
     Indication: Platelet rich plasma therapy
     Dosage: UNK
     Route: 065

REACTIONS (3)
  - Abortion early [Unknown]
  - Maternal exposure before pregnancy [Unknown]
  - Product use in unapproved indication [Unknown]
